FAERS Safety Report 10785186 (Version 3)
Quarter: 2021Q3

REPORT INFORMATION
  Report Type: Report from Study
  Country: IT (occurrence: IT)
  Receive Date: 20150211
  Receipt Date: 20210728
  Transmission Date: 20211014
  Serious: Yes (Hospitalization)
  Sender: FDA-Public Use
  Company Number: IT-ROCHE-1383266

PATIENT
  Age: 47 Year
  Sex: Male
  Weight: 80 kg

DRUGS (20)
  1. CYCLOPHOSPHAMIDE. [Suspect]
     Active Substance: CYCLOPHOSPHAMIDE
     Indication: NON-HODGKIN^S LYMPHOMA UNSPECIFIED HISTOLOGY INDOLENT
     Dosage: DATE OF LAST DOSE (1450 MG) PRIOR TO FEVER: 04/APR/2014.
     Route: 042
     Dates: start: 20131203
  2. DOXORUBICIN [Suspect]
     Active Substance: DOXORUBICIN
     Indication: NON-HODGKIN^S LYMPHOMA UNSPECIFIED HISTOLOGY INDOLENT
     Dosage: DATE OF LAST DOSE (90 MG) PRIOR TO FEVER: 04/APR/2014.
     Route: 042
     Dates: start: 20131203
  3. BISOPROLOL [Concomitant]
     Active Substance: BISOPROLOL
     Dates: start: 20140424, end: 20140724
  4. AZITHROMYCIN ANHYDROUS. [Concomitant]
     Active Substance: AZITHROMYCIN ANHYDROUS
     Dates: start: 20140325, end: 20140327
  5. FILGRASTIM [Concomitant]
     Active Substance: FILGRASTIM
     Dates: start: 20140315, end: 20140317
  6. FILGRASTIM [Concomitant]
     Active Substance: FILGRASTIM
     Dates: start: 20140410, end: 20140410
  7. VINCRISTINE [Suspect]
     Active Substance: VINCRISTINE
     Indication: NON-HODGKIN^S LYMPHOMA UNSPECIFIED HISTOLOGY INDOLENT
     Dosage: DATE OF LAST DOSE (2 MG) PRIOR TO FEVER: 04/APR/2014.
     Route: 040
     Dates: start: 20131203
  8. FILGRASTIM [Concomitant]
     Active Substance: FILGRASTIM
     Dates: start: 20140406, end: 20140406
  9. CHLORPHENIRAMINE MALEATE. [Concomitant]
     Active Substance: CHLORPHENIRAMINE MALEATE
     Indication: PREMEDICATION
     Dates: start: 20131202
  10. OBINUTUZUMAB. [Suspect]
     Active Substance: OBINUTUZUMAB
     Indication: NON-HODGKIN^S LYMPHOMA UNSPECIFIED HISTOLOGY INDOLENT
     Dosage: DATE OF LAST DOSE (VOLUME 250 ML, DOSE CONCENTRATION 1000 MG/ML) PRIOR TO FEVER : 04/APR/2014.?DOSE
     Route: 042
     Dates: start: 20131202
  11. PARACETAMOL [Concomitant]
     Active Substance: ACETAMINOPHEN
     Indication: PREMEDICATION
     Dates: start: 20131202, end: 20140529
  12. PREDNISONE. [Suspect]
     Active Substance: PREDNISONE
     Indication: NON-HODGKIN^S LYMPHOMA UNSPECIFIED HISTOLOGY INDOLENT
     Dosage: FREQUENCY : DAYS 1 TO 5,  ?DATE OF LAST DOSE (100 MG) PRIOR TO FEVER: 08/APR/2014.?SUBSEQUENT DOSES
     Route: 048
     Dates: start: 20131204
  13. METHYLPREDNISOLONE. [Suspect]
     Active Substance: METHYLPREDNISOLONE
     Indication: NON-HODGKIN^S LYMPHOMA UNSPECIFIED HISTOLOGY INDOLENT
     Dosage: SUBSEQUENT DOSES OF INTRAVENOUS METHYLPREDNISOLONE WERE RECEIVED ON 31/DEC/2013, 30/JAN/2014, 21/FEB
     Route: 042
     Dates: start: 20131203
  14. TROPISETRON [Concomitant]
     Active Substance: TROPISETRON
     Indication: PREMEDICATION
     Dates: start: 20131203, end: 20140403
  15. CEFOTAXIME [Concomitant]
     Active Substance: CEFOTAXIME SODIUM
     Dates: start: 20140325, end: 20140403
  16. GAVISCON ADVANCE [Concomitant]
     Active Substance: POTASSIUM BICARBONATE\SODIUM ALGINATE
     Dates: start: 20140404, end: 20140412
  17. PARIET [Concomitant]
     Active Substance: RABEPRAZOLE SODIUM
     Dates: start: 20140413, end: 20140424
  18. FILGRASTIM [Concomitant]
     Active Substance: FILGRASTIM
     Dates: start: 20140413, end: 20140416
  19. LANSOPRAZOLE. [Concomitant]
     Active Substance: LANSOPRAZOLE
     Dates: start: 20140129, end: 20140508
  20. FILGRASTIM [Concomitant]
     Active Substance: FILGRASTIM
     Dates: start: 20140408, end: 20140408

REACTIONS (1)
  - Febrile neutropenia [Recovered/Resolved]

NARRATIVE: CASE EVENT DATE: 20140412
